FAERS Safety Report 8230514-8 (Version None)
Quarter: 2012Q1

REPORT INFORMATION
  Report Type: 
  Country: None (occurrence: None)
  Receive Date: 20120323
  Receipt Date: 20120313
  Transmission Date: 20120608
  Serious: Yes (Hospitalization)
  Sender: FDA-Public Use
  Company Number: JP-TEVA-329281ISR

PATIENT
  Sex: Female

DRUGS (9)
  1. RISEDRONATE SODIUM [Concomitant]
  2. LANSOPRAZOLE [Concomitant]
  3. ORENCIA [Suspect]
     Indication: RHEUMATOID ARTHRITIS
  4. PREDNISOLONE [Suspect]
     Indication: RHEUMATOID ARTHRITIS
     Dosage: 4 MILLIGRAM;
     Route: 042
     Dates: start: 20110121, end: 20110610
  5. MEROPENEM [Concomitant]
  6. URSO 250 [Concomitant]
  7. JUVELA NICOTINATE [Concomitant]
  8. ALOSENN [Concomitant]
  9. PYDOXAL [Concomitant]

REACTIONS (1)
  - PNEUMONIA [None]
